FAERS Safety Report 9970407 (Version 2)
Quarter: 2014Q1

REPORT INFORMATION
  Report Type: Spontaneous
  Country: US (occurrence: None)
  Receive Date: 20140304
  Receipt Date: 20140313
  Transmission Date: 20141002
  Serious: Yes (Hospitalization)
  Sender: FDA-Public Use
  Company Number: AUR-APL-2014-01917

PATIENT
  Age: 61 Year
  Sex: Female

DRUGS (1)
  1. GABAPENTIN [Suspect]
     Indication: PRODUCT USED FOR UNKNOWN INDICATION

REACTIONS (9)
  - Neurotoxicity [None]
  - Convulsion [None]
  - Somnolence [None]
  - Fluid overload [None]
  - Diabetic ketoacidosis [None]
  - Procedural complication [None]
  - Post procedural complication [None]
  - Dialysis disequilibrium syndrome [None]
  - Sepsis [None]
